FAERS Safety Report 5335374-0 (Version None)
Quarter: 2007Q2

REPORT INFORMATION
  Report Type: 
  Country: None (occurrence: None)
  Receive Date: 20070525
  Receipt Date: 20070516
  Transmission Date: 20071010
  Serious: Yes (Hospitalization, Other)
  Sender: FDA-Public Use
  Company Number: US-PFIZER INC-2007039881

PATIENT
  Sex: Male
  Weight: 81.818 kg

DRUGS (3)
  1. CHANTIX [Suspect]
     Indication: SMOKING CESSATION THERAPY
     Route: 048
     Dates: start: 20070501, end: 20070501
  2. XANAX [Concomitant]
     Route: 048
  3. VICODIN [Concomitant]
     Route: 048

REACTIONS (3)
  - NAUSEA [None]
  - PANCREATITIS [None]
  - WEIGHT DECREASED [None]
